FAERS Safety Report 7335775-5 (Version None)
Quarter: 2011Q1

REPORT INFORMATION
  Report Type: 
  Country: None (occurrence: None)
  Receive Date: 20110307
  Receipt Date: 20110223
  Transmission Date: 20110831
  Serious: Yes (Hospitalization, Other)
  Sender: FDA-Public Use
  Company Number: GB-SANOFI-AVENTIS-2011SA011861

PATIENT
  Sex: Female

DRUGS (9)
  1. MULTAQ [Suspect]
     Route: 048
     Dates: start: 20101208, end: 20101214
  2. DIGOXIN [Concomitant]
  3. DOXAZOSIN [Concomitant]
  4. METOPROLOL FUMARATE [Concomitant]
  5. OMEPRAZOLE [Concomitant]
  6. SIMVASTATIN [Concomitant]
  7. FUROSEMIDE [Concomitant]
  8. IRBESARTAN [Concomitant]
  9. PAROXETINE [Concomitant]

REACTIONS (1)
  - PULMONARY OEDEMA [None]
